FAERS Safety Report 25372643 (Version 1)
Quarter: 2025Q2

REPORT INFORMATION
  Report Type: Spontaneous
  Country: CH (occurrence: CH)
  Receive Date: 20250529
  Receipt Date: 20250529
  Transmission Date: 20250717
  Serious: Yes (Hospitalization, Other)
  Sender: Atnahs Healthcare
  Company Number: CH-ATNAHS-ATNAHS20250503986

PATIENT
  Age: 37 Year
  Sex: Female
  Weight: 68.9 kg

DRUGS (14)
  1. VALIUM [Suspect]
     Active Substance: DIAZEPAM
     Indication: Drug dependence
     Dosage: 10 MILLIGRAM, 2X/DAY
  2. MORPHINE SULFATE [Suspect]
     Active Substance: MORPHINE SULFATE
     Indication: Drug dependence
     Dosage: 520 MILLIGRAM, 2X/DAY
  3. TIZANIDINE [Suspect]
     Active Substance: TIZANIDINE
     Indication: Substance dependence
     Dates: end: 202503
  4. TIZANIDINE [Suspect]
     Active Substance: TIZANIDINE
     Dates: start: 202503
  5. SEROQUEL [Suspect]
     Active Substance: QUETIAPINE FUMARATE
     Indication: Substance dependence
  6. CETIRIZINE HYDROCHLORIDE [Suspect]
     Active Substance: CETIRIZINE HYDROCHLORIDE
     Indication: Substance dependence
  7. LEVOFLOXACIN [Concomitant]
     Active Substance: LEVOFLOXACIN
     Indication: Pneumonia
     Dates: start: 202502, end: 20250220
  8. CANDESARTAN [Concomitant]
     Active Substance: CANDESARTAN
     Indication: Hypertension
     Dosage: 8 MILLIGRAM, 1X/DAY
  9. METOPROLOL SUCCINATE [Concomitant]
     Active Substance: METOPROLOL SUCCINATE
     Indication: Hypertension
     Dosage: 25 MILLIGRAM, 2X/DAY
  10. OMEPRAZOLE [Concomitant]
     Active Substance: OMEPRAZOLE
     Indication: Product used for unknown indication
     Dosage: 40 MILLIGRAM, 1X/DAY
  11. IBUPROFEN [Concomitant]
     Active Substance: IBUPROFEN
     Indication: Product used for unknown indication
  12. ACETAMINOPHEN [Concomitant]
     Active Substance: ACETAMINOPHEN
     Indication: Product used for unknown indication
     Dosage: 500 MILLIGRAM, 3X/DAY
  13. PRUCALOPRIDE SUCCINATE [Concomitant]
     Active Substance: PRUCALOPRIDE SUCCINATE
     Indication: Product used for unknown indication
     Dosage: 1 MILLIGRAM, 2X/DAY
  14. FERROUS SULFATE [Concomitant]
     Active Substance: FERROUS SULFATE
     Indication: Anaemia
     Dosage: UNK UNK, 1X/DAY
     Dates: start: 2016, end: 202502

REACTIONS (1)
  - Convulsive threshold lowered [Recovering/Resolving]

NARRATIVE: CASE EVENT DATE: 20250225
